FAERS Safety Report 9513495 (Version 1)
Quarter: 2013Q3

REPORT INFORMATION
  Report Type: Spontaneous
  Country: US (occurrence: US)
  Receive Date: 20130910
  Receipt Date: 20130910
  Transmission Date: 20140515
  Serious: No
  Sender: FDA-Public Use
  Company Number: US-TARO-2013P1006372

PATIENT
  Age: 89 Year
  Sex: Female
  Weight: 63.5 kg

DRUGS (8)
  1. WARFARIN SODIUM TABLETS USP 1MG [Suspect]
     Indication: ATRIAL FIBRILLATION
     Route: 048
  2. WARFARIN SODIUM TABLETS USP 1MG [Suspect]
     Indication: ATRIAL FIBRILLATION
     Route: 048
  3. ACTIVASE [Concomitant]
  4. UNSPECIFIED BLOOD PRESSURE PILL [Concomitant]
  5. LASIX [Concomitant]
  6. PREVACID [Concomitant]
  7. VITAMIN B12 [Concomitant]
  8. LEVOTHYROXINE [Concomitant]

REACTIONS (3)
  - Weight increased [Not Recovered/Not Resolved]
  - International normalised ratio decreased [Not Recovered/Not Resolved]
  - Fatigue [Not Recovered/Not Resolved]
